FAERS Safety Report 9473345 (Version 1)
Quarter: 2013Q3

REPORT INFORMATION
  Report Type: Spontaneous
  Country: US (occurrence: US)
  Receive Date: 20130823
  Receipt Date: 20130823
  Transmission Date: 20140515
  Serious: No
  Sender: FDA-Public Use
  Company Number: US-BRISTOL-MYERS SQUIBB COMPANY-18902734

PATIENT
  Age: 46 Year
  Sex: Male
  Weight: 99.77 kg

DRUGS (2)
  1. SPRYCEL [Suspect]
     Indication: CHRONIC MYELOID LEUKAEMIA
     Dates: start: 20130424
  2. ALBUTEROL INHALER [Concomitant]

REACTIONS (3)
  - Vision blurred [Unknown]
  - Confusional state [Unknown]
  - Headache [Unknown]
